FAERS Safety Report 23856896 (Version 1)
Quarter: 2024Q2

REPORT INFORMATION
  Report Type: Spontaneous
  Country: DE (occurrence: DE)
  Receive Date: 20240515
  Receipt Date: 20240515
  Transmission Date: 20240716
  Serious: Yes (Other)
  Sender: FDA-Public Use
  Company Number: None

PATIENT
  Sex: Female
  Weight: 75 kg

DRUGS (6)
  1. EXEMESTANE [Suspect]
     Active Substance: EXEMESTANE
     Indication: Breast cancer metastatic
     Dosage: 25 MG, QD
     Dates: start: 20190809, end: 20240206
  2. KISQALI [Suspect]
     Active Substance: RIBOCICLIB
     Indication: Breast cancer metastatic
     Dosage: 600 MG, QD (SCHEME 21 DAYS INTAKE, THEN 7 DAYS BREAK)
     Dates: start: 20190809, end: 20191128
  3. KISQALI [Suspect]
     Active Substance: RIBOCICLIB
     Dosage: 600 MG, QD (SCHEME 21 DAYS INTAKE THAN 7 DAYS BREAK)
     Dates: start: 20210814, end: 20231121
  4. KISQALI [Suspect]
     Active Substance: RIBOCICLIB
     Dosage: 200 MG, QD
     Route: 065
     Dates: start: 20231229, end: 20240206
  5. KISQALI [Suspect]
     Active Substance: RIBOCICLIB
     Dosage: 400 MG, QD, (SCHEME 21 DAYS INTAKE THAN 7 DAYS BREAK)
     Dates: start: 20191129, end: 20210804
  6. KISQALI [Suspect]
     Active Substance: RIBOCICLIB
     Dosage: 0 MG, QD
     Dates: start: 20210805, end: 20210813

REACTIONS (5)
  - Anaemia [Not Recovered/Not Resolved]
  - Cardiac failure [Unknown]
  - Dyspnoea exertional [Not Recovered/Not Resolved]
  - Diarrhoea [Recovered/Resolved]
  - Constipation [Not Recovered/Not Resolved]

NARRATIVE: CASE EVENT DATE: 20190829
